FAERS Safety Report 17731000 (Version 1)
Quarter: 2020Q2

REPORT INFORMATION
  Report Type: Report from Study
  Country: ES (occurrence: ES)
  Receive Date: 20200430
  Receipt Date: 20200430
  Transmission Date: 20200714
  Serious: Yes (Hospitalization)
  Sender: FDA-Public Use
  Company Number: ES-ROCHE-2590781

PATIENT
  Age: 55 Year
  Sex: Female

DRUGS (15)
  1. TARDYFERON [Concomitant]
     Active Substance: FERROUS SULFATE
     Route: 048
     Dates: start: 20200310
  2. ETOPOSIDE. [Suspect]
     Active Substance: ETOPOSIDE
     Indication: SMALL CELL LUNG CANCER EXTENSIVE STAGE
     Dosage: ON 12/MAR/2020, MOST RECENT DOSE OF ETOPOSIDE PRIOR TO AE ONSET
     Route: 042
     Dates: start: 20200107
  3. DULOXETINE. [Concomitant]
     Active Substance: DULOXETINE
     Route: 048
     Dates: end: 20200423
  4. ENALAPRIL [Concomitant]
     Active Substance: ENALAPRIL
     Route: 048
     Dates: start: 20200310
  5. FUROSEMIDE. [Concomitant]
     Active Substance: FUROSEMIDE
     Route: 048
     Dates: start: 20200331
  6. DEXAMETHASONE. [Concomitant]
     Active Substance: DEXAMETHASONE
     Route: 048
     Dates: start: 20200218, end: 20200309
  7. DEXAMETHASONE. [Concomitant]
     Active Substance: DEXAMETHASONE
     Dosage: BREAKFAST
     Route: 048
     Dates: start: 20200407
  8. ATEZOLIZUMAB. [Suspect]
     Active Substance: ATEZOLIZUMAB
     Indication: SMALL CELL LUNG CANCER EXTENSIVE STAGE
     Dosage: ON 10/MAR/2020, MOST RECENT DOSE OF ATEZOLIZUMAB (1200 MG) PRIOR TO AE ONSET
     Route: 042
     Dates: start: 20200107
  9. DEXAMETHASONE. [Concomitant]
     Active Substance: DEXAMETHASONE
     Route: 048
     Dates: start: 20200310, end: 20200330
  10. FENOFIBRATO [Concomitant]
     Active Substance: FENOFIBRATE
     Route: 048
     Dates: start: 20200218
  11. CARBOPLATIN. [Suspect]
     Active Substance: CARBOPLATIN
     Indication: SMALL CELL LUNG CANCER EXTENSIVE STAGE
     Dosage: ON 10/MAR/2020, MOST RECENT DOSE OF CARBOPLATIN PRIOR TO AE ONSET
     Route: 042
     Dates: start: 20200107
  12. DEXAMETHASONE. [Concomitant]
     Active Substance: DEXAMETHASONE
     Dosage: DINNER
     Route: 048
     Dates: start: 20200407
  13. OMEPRAZOL [OMEPRAZOLE] [Concomitant]
     Active Substance: OMEPRAZOLE
     Route: 048
  14. DEXAMETHASONE. [Concomitant]
     Active Substance: DEXAMETHASONE
     Route: 048
     Dates: start: 20200331, end: 20200406
  15. DEXAMETHASONE. [Concomitant]
     Active Substance: DEXAMETHASONE
     Route: 048
     Dates: end: 20200217

REACTIONS (1)
  - Hepatotoxicity [Not Recovered/Not Resolved]

NARRATIVE: CASE EVENT DATE: 20200423
